FAERS Safety Report 25632594 (Version 1)
Quarter: 2025Q3

REPORT INFORMATION
  Report Type: Spontaneous
  Country: US (occurrence: US)
  Receive Date: 20250801
  Receipt Date: 20250801
  Transmission Date: 20251021
  Serious: No
  Sender: GRIFOLS
  Company Number: US-IGSA-BIG0030361

PATIENT
  Sex: Female

DRUGS (28)
  1. GAMUNEX-C [Suspect]
     Active Substance: HUMAN IMMUNOGLOBULIN G
     Indication: Nausea
     Dosage: 70 GRAM, Q.4WK.
     Route: 042
  2. GAMUNEX-C [Suspect]
     Active Substance: HUMAN IMMUNOGLOBULIN G
     Indication: Off label use
  3. PROZAC [Concomitant]
     Active Substance: FLUOXETINE HYDROCHLORIDE
  4. OZEMPIC [Concomitant]
     Active Substance: SEMAGLUTIDE
  5. LANTUS [Concomitant]
     Active Substance: INSULIN GLARGINE
  6. NITROFURANTOIN [Concomitant]
     Active Substance: NITROFURANTOIN
  7. AZITHROMYCIN [Concomitant]
     Active Substance: AZITHROMYCIN
  8. BREO ELLIPTA [Concomitant]
     Active Substance: FLUTICASONE FUROATE\VILANTEROL TRIFENATATE
  9. ADVAIR HFA [Concomitant]
     Active Substance: FLUTICASONE PROPIONATE\SALMETEROL XINAFOATE
  10. BENADRYL [Concomitant]
     Active Substance: DIPHENHYDRAMINE HYDROCHLORIDE
  11. CALCIUM\VITAMIN D [Concomitant]
     Active Substance: CALCIUM\VITAMIN D
  12. FISH OIL [Concomitant]
     Active Substance: FISH OIL
  13. FLONASE [Concomitant]
     Active Substance: FLUTICASONE PROPIONATE
  14. FROVATRIPTAN [Concomitant]
     Active Substance: FROVATRIPTAN
  15. HYDROCHLOROTHIAZIDE [Concomitant]
     Active Substance: HYDROCHLOROTHIAZIDE
  16. JANUVIA [Concomitant]
     Active Substance: SITAGLIPTIN PHOSPHATE
  17. LAMICTAL [Concomitant]
     Active Substance: LAMOTRIGINE
  18. LEVOCETIRIZINE HYDROCHLORIDE [Concomitant]
     Active Substance: LEVOCETIRIZINE HYDROCHLORIDE
  19. LOSARTAN [Concomitant]
     Active Substance: LOSARTAN
  20. LOVASTATIN [Concomitant]
     Active Substance: LOVASTATIN
  21. LYRICA [Concomitant]
     Active Substance: PREGABALIN
  22. METFORMIN [Concomitant]
     Active Substance: METFORMIN HYDROCHLORIDE
  23. ADULT MULTIVITAMIN [Concomitant]
  24. NIACIN [Concomitant]
     Active Substance: NIACIN
  25. SINGULAIR [Concomitant]
     Active Substance: MONTELUKAST SODIUM
  26. TRAZODONE HCL [Concomitant]
     Active Substance: TRAZODONE HYDROCHLORIDE
  27. VITAMIN C [Concomitant]
     Active Substance: ASCORBIC ACID
  28. ZOFRAN [Concomitant]
     Active Substance: ONDANSETRON HYDROCHLORIDE

REACTIONS (1)
  - Hypertension [Unknown]
